FAERS Safety Report 6332971-0 (Version None)
Quarter: 2009Q3

REPORT INFORMATION
  Report Type: 
  Country: None (occurrence: None)
  Receive Date: 20090828
  Receipt Date: 20090819
  Transmission Date: 20100115
  Serious: Yes (Other)
  Sender: FDA-Public Use
  Company Number: PHHY2009PT32971

PATIENT
  Sex: Male

DRUGS (12)
  1. RIVASTIGMINE TARTRATE [Suspect]
     Indication: DEMENTIA ALZHEIMER'S TYPE
     Dosage: 9.5 MG/DAY
     Route: 062
     Dates: start: 20081101, end: 20090601
  2. FENOFIBRATE [Concomitant]
  3. METFORMIN HCL [Concomitant]
  4. PROPRANOLOL [Concomitant]
  5. ISOSORBIDE MONONITRATE [Concomitant]
  6. CAPTOPRIL [Concomitant]
  7. WARFARIN [Concomitant]
  8. PRAVASTATIN [Concomitant]
  9. SPIRONOLACTONE [Concomitant]
  10. ALPRAZOLAM [Concomitant]
  11. ACETYLSALICYLATE [Concomitant]
  12. SERTRALINE HCL [Concomitant]

REACTIONS (1)
  - TOXIC SKIN ERUPTION [None]
